FAERS Safety Report 15180544 (Version 1)
Quarter: 2018Q3

REPORT INFORMATION
  Report Type: Spontaneous
  Country: DK (occurrence: DK)
  Receive Date: 20180723
  Receipt Date: 20180723
  Transmission Date: 20181010
  Serious: Yes (Life-Threatening, Hospitalization)
  Sender: FDA-Public Use
  Company Number: DK-TEVA-2018-DK-928042

PATIENT
  Age: 88 Year
  Sex: Female
  Weight: 45 kg

DRUGS (10)
  1. ATORVASTATIN ^TEVA^ [Suspect]
     Active Substance: ATORVASTATIN
     Indication: HYPERCHOLESTEROLAEMIA
     Dosage: 40 MILLIGRAM DAILY; STRENGTH: 40 MG
     Route: 048
     Dates: start: 20180413, end: 20180602
  2. OVESTIN [Concomitant]
     Active Substance: ESTRIOL
     Indication: HORMONE THERAPY
     Dosage: STRENGTH: 0,5 MG
     Route: 067
     Dates: start: 20131016
  3. PROLIA [Concomitant]
     Active Substance: DENOSUMAB
     Indication: OSTEOPOROSIS
     Dosage: STRENGTH: 60 MG/ML
     Route: 065
     Dates: start: 20131127
  4. PANODIL [Concomitant]
     Active Substance: ACETAMINOPHEN
     Indication: PAIN
     Dosage: STRENGTH: 500 MG. DOSE: 2 MAXIMUM X 4 DAILY.
     Route: 048
     Dates: start: 2016
  5. IMOCLONE [Concomitant]
     Active Substance: ZOPICLONE
     Indication: INSOMNIA
     Dosage: DOSE: ? TABLET AS NEEDED, HIGHEST TWICE DAILY. STRENGTH: 7.5 MG
     Route: 048
     Dates: start: 20180413
  6. RAPENIN [Suspect]
     Active Substance: PENICILLIN V POTASSIUM
     Indication: PNEUMONIA
     Dosage: 2400 MILLIGRAM DAILY; STRENGTH: 800 MG
     Route: 048
     Dates: start: 20180522, end: 20180527
  7. PANTOPRAZOLE [Concomitant]
     Active Substance: PANTOPRAZOLE
     Indication: PROPHYLAXIS AGAINST GASTROINTESTINAL ULCER
     Dosage: 20 MILLIGRAM DAILY; STRENGTH: 20 MG
     Route: 048
     Dates: start: 20180413
  8. FUCITHALMIC [Concomitant]
     Active Substance: FUSIDIC ACID
     Indication: CONJUNCTIVITIS
     Dosage: STRENGTH: 1% DOSE: 1 DROP TWICE DAILY IN BOTH EYES
     Route: 050
     Dates: start: 20180514, end: 20180526
  9. CORODIL COMP [Concomitant]
     Active Substance: ENALAPRIL MALEATE\HYDROCHLOROTHIAZIDE
     Indication: HYPERTENSION
     Dosage: .5 DOSAGE FORMS DAILY; STRENGTH: 20+12,5 MG
     Route: 048
     Dates: start: 20130508
  10. NORVASC [Concomitant]
     Active Substance: AMLODIPINE BESYLATE
     Indication: HYPERTENSION
     Dosage: 10 MILLIGRAM DAILY;
     Route: 048
     Dates: start: 20131016

REACTIONS (6)
  - Stevens-Johnson syndrome [Recovering/Resolving]
  - Blister [Recovering/Resolving]
  - Rash [Recovering/Resolving]
  - Scab [Recovering/Resolving]
  - Erythema [Recovering/Resolving]
  - Dermatitis [Recovering/Resolving]

NARRATIVE: CASE EVENT DATE: 20180522
